FAERS Safety Report 16235400 (Version 2)
Quarter: 2020Q2

REPORT INFORMATION
  Report Type: Spontaneous
  Country: US (occurrence: US)
  Receive Date: 20190424
  Receipt Date: 20200422
  Transmission Date: 20200713
  Serious: Yes (Hospitalization, Other)
  Sender: FDA-Public Use
  Company Number: US-ASTRAZENECA-2019SE58430

PATIENT
  Sex: Male
  Weight: 107 kg

DRUGS (64)
  1. INSULIN [Concomitant]
     Active Substance: INSULIN NOS
  2. MORPHINE [Concomitant]
     Active Substance: MORPHINE
  3. ALLOPURINOL. [Concomitant]
     Active Substance: ALLOPURINOL
  4. AZITHROMYCIN ANHYDROUS. [Concomitant]
     Active Substance: AZITHROMYCIN ANHYDROUS
  5. SPIRIVA [Concomitant]
     Active Substance: TIOTROPIUM BROMIDE MONOHYDRATE
  6. INTEGRILIN [Concomitant]
     Active Substance: EPTIFIBATIDE
  7. CHANTIX [Concomitant]
     Active Substance: VARENICLINE TARTRATE
  8. ROBAXIN [Concomitant]
     Active Substance: METHOCARBAMOL
  9. PREVACID [Suspect]
     Active Substance: LANSOPRAZOLE
     Indication: GASTROOESOPHAGEAL REFLUX DISEASE
     Dosage: GENERIC
     Route: 065
     Dates: start: 20091216, end: 20091228
  10. POTASSIUM CHLORIDE. [Concomitant]
     Active Substance: POTASSIUM CHLORIDE
  11. DIGOXIN. [Concomitant]
     Active Substance: DIGOXIN
  12. VALSARTAN. [Concomitant]
     Active Substance: VALSARTAN
  13. VENOFER [Concomitant]
     Active Substance: IRON SUCROSE
  14. METFORMIN [Concomitant]
     Active Substance: METFORMIN HYDROCHLORIDE
  15. COPAXONE [Concomitant]
     Active Substance: GLATIRAMER ACETATE
  16. PREVACID [Suspect]
     Active Substance: LANSOPRAZOLE
     Indication: GASTROOESOPHAGEAL REFLUX DISEASE
     Route: 065
     Dates: start: 200201, end: 201112
  17. HYDROCODON ACETAMINOPHEN [Concomitant]
     Indication: PAIN
     Dates: start: 20150315, end: 20161004
  18. XANAX [Concomitant]
     Active Substance: ALPRAZOLAM
  19. CARVEDILOL. [Concomitant]
     Active Substance: CARVEDILOL
  20. CALCIUM [Concomitant]
     Active Substance: CALCIUM
  21. OMNIPAQUE [Concomitant]
     Active Substance: IOHEXOL
  22. PHENOL. [Concomitant]
     Active Substance: PHENOL
  23. ARANESP [Concomitant]
     Active Substance: DARBEPOETIN ALFA
  24. PROTONIX [Suspect]
     Active Substance: PANTOPRAZOLE SODIUM
     Indication: GASTROOESOPHAGEAL REFLUX DISEASE
     Route: 065
     Dates: start: 200201, end: 201112
  25. IMDUR [Concomitant]
     Active Substance: ISOSORBIDE MONONITRATE
  26. MAXIPIME [Concomitant]
     Active Substance: CEFEPIME HYDROCHLORIDE
  27. NYSTATIN. [Concomitant]
     Active Substance: NYSTATIN
  28. NOVOLIN NOS [Concomitant]
     Active Substance: INSULIN HUMAN
  29. PRILOSEC [Suspect]
     Active Substance: OMEPRAZOLE MAGNESIUM
     Indication: GASTROOESOPHAGEAL REFLUX DISEASE
     Dosage: GENERIC
     Route: 065
     Dates: start: 20070222, end: 20121214
  30. PRILOSEC [Suspect]
     Active Substance: OMEPRAZOLE MAGNESIUM
     Indication: GASTROOESOPHAGEAL REFLUX DISEASE
     Dosage: GENERIC
     Route: 065
     Dates: start: 20151119, end: 20151124
  31. PREVACID [Suspect]
     Active Substance: LANSOPRAZOLE
     Indication: GASTROOESOPHAGEAL REFLUX DISEASE
     Dosage: GENERIC
     Route: 065
     Dates: start: 20020322, end: 20070102
  32. PROSCAR [Concomitant]
     Active Substance: FINASTERIDE
  33. COUMADIN [Concomitant]
     Active Substance: WARFARIN SODIUM
  34. CALCIUM ACETATE. [Concomitant]
     Active Substance: CALCIUM ACETATE
  35. LEVOTHYROXINE. [Concomitant]
     Active Substance: LEVOTHYROXINE
  36. DIPHENHYDRAMINE. [Concomitant]
     Active Substance: DIPHENHYDRAMINE
  37. AVELOX [Concomitant]
     Active Substance: MOXIFLOXACIN HYDROCHLORIDE
  38. MENTHOL. [Concomitant]
     Active Substance: MENTHOL
  39. AMIODARONE [Concomitant]
     Active Substance: AMIODARONE
  40. DOCUSATE SODIUM. [Concomitant]
     Active Substance: DOCUSATE SODIUM
  41. FERROUS SULFATE. [Concomitant]
     Active Substance: FERROUS SULFATE
  42. HYDROMORPHONE [Concomitant]
     Active Substance: HYDROMORPHONE
  43. DUONEB [Concomitant]
     Active Substance: ALBUTEROL SULFATE\IPRATROPIUM BROMIDE
  44. PREVACID 24 HR [Suspect]
     Active Substance: LANSOPRAZOLE
     Indication: GASTROOESOPHAGEAL REFLUX DISEASE
     Route: 065
     Dates: start: 2012, end: 2017
  45. LISINOPRIL. [Concomitant]
     Active Substance: LISINOPRIL
     Indication: HYPERTENSION
     Dates: start: 20110129, end: 20160308
  46. ALBUTEROL. [Concomitant]
     Active Substance: ALBUTEROL
     Indication: BRONCHOSPASM
     Dates: start: 20100617, end: 20140331
  47. LASIX [Concomitant]
     Active Substance: FUROSEMIDE
  48. ZOCOR [Concomitant]
     Active Substance: SIMVASTATIN
  49. HYDRALAZINE [Concomitant]
     Active Substance: HYDRALAZINE HYDROCHLORIDE
  50. PRILOSEC [Suspect]
     Active Substance: OMEPRAZOLE MAGNESIUM
     Indication: GASTROOESOPHAGEAL REFLUX DISEASE
     Route: 048
     Dates: start: 200201, end: 201112
  51. PRILOSEC [Suspect]
     Active Substance: OMEPRAZOLE MAGNESIUM
     Indication: GASTROOESOPHAGEAL REFLUX DISEASE
     Route: 048
     Dates: start: 20081109, end: 20140626
  52. PREVACID [Suspect]
     Active Substance: LANSOPRAZOLE
     Indication: GASTROOESOPHAGEAL REFLUX DISEASE
     Route: 065
     Dates: start: 20070322
  53. PANTOPRAZOLE IV [Suspect]
     Active Substance: PANTOPRAZOLE SODIUM
     Indication: GASTROOESOPHAGEAL REFLUX DISEASE
     Route: 065
     Dates: start: 20151113, end: 20151119
  54. GLIPIZIDE. [Concomitant]
     Active Substance: GLIPIZIDE
  55. ASPIRIN. [Concomitant]
     Active Substance: ASPIRIN
  56. ISOSORBIDE DINITRATE. [Concomitant]
     Active Substance: ISOSORBIDE DINITRATE
  57. SODIUM CHLORIDE. [Concomitant]
     Active Substance: SODIUM CHLORIDE
  58. METHYLPREDNISOLONE. [Concomitant]
     Active Substance: METHYLPREDNISOLONE
  59. WARFARIN [Concomitant]
     Active Substance: WARFARIN
  60. PRILOSEC OTC [Suspect]
     Active Substance: OMEPRAZOLE MAGNESIUM
     Indication: GASTROOESOPHAGEAL REFLUX DISEASE
     Route: 048
     Dates: start: 2012, end: 2017
  61. PROTONIX [Suspect]
     Active Substance: PANTOPRAZOLE SODIUM
     Indication: GASTROOESOPHAGEAL REFLUX DISEASE
     Dosage: GENERIC
     Route: 065
     Dates: start: 20070103, end: 20110204
  62. PROTONIX [Suspect]
     Active Substance: PANTOPRAZOLE SODIUM
     Indication: GASTROOESOPHAGEAL REFLUX DISEASE
     Route: 065
     Dates: start: 20110126, end: 20110226
  63. CLONIDINE. [Concomitant]
     Active Substance: CLONIDINE
     Indication: HYPERTENSION
     Dates: start: 20110531, end: 20110626
  64. PAXIL [Concomitant]
     Active Substance: PAROXETINE HYDROCHLORIDE

REACTIONS (5)
  - Acute kidney injury [Not Recovered/Not Resolved]
  - Nephrogenic anaemia [Unknown]
  - Renal failure [Unknown]
  - Chronic kidney disease [Not Recovered/Not Resolved]
  - End stage renal disease [Not Recovered/Not Resolved]
